FAERS Safety Report 4327799-7 (Version None)
Quarter: 2004Q1

REPORT INFORMATION
  Report Type: 
  Country: None (occurrence: None)
  Receive Date: 20040325
  Receipt Date: 20040309
  Transmission Date: 20041129
  Serious: Yes (Hospitalization)
  Sender: FDA-Public Use
  Company Number: AU-JNJFOC-20040304378

PATIENT
  Sex: Male

DRUGS (8)
  1. TRAMADOL HCL [Suspect]
     Indication: DRUG USE FOR UNKNOWN INDICATION
     Dosage: 150 MG, ORAL
     Route: 048
     Dates: start: 20030616, end: 20030617
  2. NEDOCROMIL (NEDOCROMIL) [Concomitant]
  3. BUDESONIDE (BUDESONIDE) [Concomitant]
  4. LERCANIDIPINE [Concomitant]
  5. RANITIDINE [Concomitant]
  6. CLOPIDOGREL (CLOPIDOGREL) [Concomitant]
  7. NITROGLYCERIN [Concomitant]
  8. AVAPRO HCT (KARVEA HCT) [Concomitant]

REACTIONS (4)
  - BRADYCARDIA [None]
  - MALAISE [None]
  - NAUSEA [None]
  - VOMITING [None]
